FAERS Safety Report 12216905 (Version 1)
Quarter: 2016Q1

REPORT INFORMATION
  Report Type: Spontaneous
  Country: FR (occurrence: FR)
  Receive Date: 20160329
  Receipt Date: 20160329
  Transmission Date: 20160526
  Serious: Yes (Hospitalization, Other)
  Sender: FDA-Public Use
  Company Number: FR-ASTRAZENECA-2016SE32987

PATIENT
  Age: 1056 Month
  Sex: Male

DRUGS (8)
  1. ALFUZOSIN [Concomitant]
     Active Substance: ALFUZOSIN
  2. NEBIVOLOL. [Concomitant]
     Active Substance: NEBIVOLOL
  3. ATACAND [Suspect]
     Active Substance: CANDESARTAN CILEXETIL
     Indication: CARDIAC FAILURE
     Route: 048
     Dates: start: 20060701, end: 201601
  4. ATACAND [Suspect]
     Active Substance: CANDESARTAN CILEXETIL
     Indication: CARDIAC FAILURE
     Route: 048
     Dates: end: 20160203
  5. CLOPIDOGREL [Concomitant]
     Active Substance: CLOPIDOGREL BISULFATE
  6. LANSOPRAZOLE. [Concomitant]
     Active Substance: LANSOPRAZOLE
  7. FUROSEMIDE. [Concomitant]
     Active Substance: FUROSEMIDE
  8. AVODART [Concomitant]
     Active Substance: DUTASTERIDE

REACTIONS (7)
  - Gastrointestinal haemorrhage [Unknown]
  - Cardiac failure [Unknown]
  - Ischaemic cardiomyopathy [Unknown]
  - Prostatitis [Unknown]
  - Diarrhoea [Recovered/Resolved]
  - Orthostatic hypotension [Unknown]
  - Melaena [Unknown]

NARRATIVE: CASE EVENT DATE: 201512
